FAERS Safety Report 6336241-6 (Version None)
Quarter: 2009Q3

REPORT INFORMATION
  Report Type: 
  Country: None (occurrence: None)
  Receive Date: 20090901
  Receipt Date: 20090825
  Transmission Date: 20100115
  Serious: Yes (Other)
  Sender: FDA-Public Use
  Company Number: PHEH2009US09861

PATIENT
  Age: 86 Year
  Sex: Female

DRUGS (2)
  1. DIOVAN [Suspect]
     Dosage: 160 MG, UNK
     Dates: start: 20090723, end: 20090821
  2. DIOVAN [Suspect]
     Dosage: 320 MG, UNK

REACTIONS (9)
  - BACK PAIN [None]
  - FATIGUE [None]
  - GAIT DISTURBANCE [None]
  - GASTRIC ULCER HAEMORRHAGE [None]
  - INFLUENZA [None]
  - MASTECTOMY [None]
  - MYALGIA [None]
  - OROPHARYNGEAL PAIN [None]
  - RENAL ARTERY OCCLUSION [None]
